FAERS Safety Report 8766880 (Version 1)
Quarter: 2012Q4

REPORT INFORMATION
  Report Type: 
  Country: US (occurrence: US)
  Receive Date: 20120904
  Receipt Date: 20120904
  Transmission Date: 20130627
  Serious: No
  Sender: FDA-Public Use
  Company Number: US-MYLANLABS-2012S1014651

PATIENT
  Age: 70 Year
  Sex: Female

DRUGS (1)
  1. ENALAPRIL TABLETS [Suspect]

REACTIONS (2)
  - Cough [Not Recovered/Not Resolved]
  - Unevaluable event [Not Recovered/Not Resolved]
